FAERS Safety Report 5874927-8 (Version None)
Quarter: 2008Q3

REPORT INFORMATION
  Report Type: 
  Country: None (occurrence: None)
  Receive Date: 20080909
  Receipt Date: 20080829
  Transmission Date: 20090109
  Serious: Yes (Life-Threatening, Hospitalization)
  Sender: FDA-Public Use
  Company Number: US-JNJFOC-20071202674

PATIENT
  Sex: Male
  Weight: 109.32 kg

DRUGS (8)
  1. TRAMADOL HYDROCHLORIDE [Suspect]
     Route: 048
  2. TRAMADOL HYDROCHLORIDE [Suspect]
     Indication: OSTEOARTHRITIS
     Route: 048
  3. VITAMIN B COMPLEX CAP [Concomitant]
  4. NEXIUM [Concomitant]
  5. ACETYLSALICYLIC ACID SRT [Concomitant]
  6. ZYRTEC [Concomitant]
  7. SPIROLACTONE [Concomitant]
  8. ZOCOR [Concomitant]

REACTIONS (3)
  - CARDIAC ARREST [None]
  - CARDIOMYOPATHY [None]
  - VENTRICULAR FIBRILLATION [None]
